FAERS Safety Report 24550972 (Version 1)
Quarter: 2024Q4

REPORT INFORMATION
  Report Type: Spontaneous
  Country: FR (occurrence: FR)
  Receive Date: 20241025
  Receipt Date: 20241025
  Transmission Date: 20250115
  Serious: Yes (Other)
  Sender: TAKEDA
  Company Number: FR-LUNDBECK-DKLU4005929

PATIENT
  Age: 64 Year
  Sex: Female

DRUGS (5)
  1. VORTIOXETINE [Interacting]
     Active Substance: VORTIOXETINE
     Indication: Depression
     Dosage: UNK
     Route: 065
  2. VORTIOXETINE [Interacting]
     Active Substance: VORTIOXETINE
     Dosage: UNK
     Route: 065
  3. ESKETAMINE [Interacting]
     Active Substance: ESKETAMINE
     Indication: Major depression
     Dosage: 58 MILLIGRAM
     Route: 045
  4. RAMIPRIL [Concomitant]
     Active Substance: RAMIPRIL
     Indication: Hypertension
     Dosage: UNK
  5. DIAZEPAM [Concomitant]
     Active Substance: DIAZEPAM
     Indication: Product used for unknown indication
     Dosage: UNK

REACTIONS (5)
  - CYP2B6 polymorphism [Unknown]
  - Drug interaction [Unknown]
  - Anxiety [Not Recovered/Not Resolved]
  - Psychomotor retardation [Not Recovered/Not Resolved]
  - Psychotic symptom [Recovered/Resolved]
